FAERS Safety Report 9819585 (Version 1)
Quarter: 2014Q1

REPORT INFORMATION
  Report Type: Spontaneous
  Country: DE (occurrence: DE)
  Receive Date: 20140115
  Receipt Date: 20140115
  Transmission Date: 20141002
  Serious: Yes (Other)
  Sender: FDA-Public Use
  Company Number: DE-ELI_LILLY_AND_COMPANY-DE201401000942

PATIENT
  Sex: Female

DRUGS (1)
  1. FORSTEO [Suspect]
     Indication: OSTEOPOROSIS POSTMENOPAUSAL
     Dosage: 20 UNK, UNKNOWN
     Route: 058
     Dates: end: 20131127

REACTIONS (3)
  - Renal disorder [Recovered/Resolved]
  - Blood potassium increased [Recovered/Resolved]
  - Blood calcium increased [Recovered/Resolved]
